FAERS Safety Report 10402437 (Version 1)
Quarter: 2014Q3

REPORT INFORMATION
  Report Type: Spontaneous
  Country: US (occurrence: US)
  Receive Date: 20140822
  Receipt Date: 20140822
  Transmission Date: 20150326
  Serious: Yes (Other)
  Sender: FDA-Public Use
  Company Number: US-WATSON-2014-17970

PATIENT

DRUGS (1)
  1. TRANEXAMIC ACID (WATSON LABORATORIES) [Suspect]
     Active Substance: TRANEXAMIC ACID
     Indication: UTERINE LEIOMYOMA
     Dosage: 2 DF, TID
     Route: 048
     Dates: start: 201403

REACTIONS (4)
  - Insomnia [Not Recovered/Not Resolved]
  - Feeling abnormal [Not Recovered/Not Resolved]
  - Anaemia [Not Recovered/Not Resolved]
  - Arterial disorder [Unknown]

NARRATIVE: CASE EVENT DATE: 20140711
